FAERS Safety Report 15109595 (Version 2)
Quarter: 2018Q3

REPORT INFORMATION
  Report Type: Spontaneous
  Country: US (occurrence: US)
  Receive Date: 20180705
  Receipt Date: 20180709
  Transmission Date: 20181010
  Serious: No
  Sender: FDA-Public Use
  Company Number: US-PFIZER INC-2018270472

PATIENT
  Sex: Female

DRUGS (1)
  1. LYRICA [Suspect]
     Active Substance: PREGABALIN
     Indication: HYPOAESTHESIA
     Dosage: 50 MG, 1X/DAY(50MG CAPSULES?1 CAPSULE TAKEN BY MOUTH AT NIGHT BEFORE BEDTIME)
     Route: 048
     Dates: start: 201409

REACTIONS (3)
  - Drug dose omission [Unknown]
  - Arthritis [Unknown]
  - Pain [Unknown]
